FAERS Safety Report 10248910 (Version 1)
Quarter: 2014Q2

REPORT INFORMATION
  Report Type: Spontaneous
  Country: US (occurrence: None)
  Receive Date: 20140619
  Receipt Date: 20140619
  Transmission Date: 20141212
  Serious: Yes (Other)
  Sender: FDA-Public Use
  Company Number: None

PATIENT
  Age: 65 Year
  Sex: Male
  Weight: 66.68 kg

DRUGS (4)
  1. LATANOPROST [Suspect]
     Indication: GLAUCOMA
     Dates: start: 20140512, end: 20140618
  2. LISINOPRIL [Concomitant]
  3. BRIMONIDINE EYE DROPS [Concomitant]
  4. VITAMIN D [Concomitant]

REACTIONS (1)
  - Product substitution issue [None]
